FAERS Safety Report 16758746 (Version 1)
Quarter: 2019Q3

REPORT INFORMATION
  Report Type: Spontaneous
  Country: DE (occurrence: DE)
  Receive Date: 20190830
  Receipt Date: 20190830
  Transmission Date: 20191005
  Serious: Yes (Congenital Anomaly, Other)
  Sender: FDA-Public Use
  Company Number: DE-ALKEM LABORATORIES LIMITED-DE-ALKEM-2017-02271

PATIENT
  Sex: Male
  Weight: 3.42 kg

DRUGS (2)
  1. QUETIAPINE FUMARATE. [Suspect]
     Active Substance: QUETIAPINE FUMARATE
     Dosage: UNK UNK, QD
     Route: 064
  2. ELONTRIL [Suspect]
     Active Substance: BUPROPION HYDROCHLORIDE
     Route: 064

REACTIONS (3)
  - Hydrocephalus [Not Recovered/Not Resolved]
  - Foetal exposure during pregnancy [Unknown]
  - Vein of Galen aneurysmal malformation [Not Recovered/Not Resolved]
